FAERS Safety Report 4466631-8 (Version None)
Quarter: 2004Q3

REPORT INFORMATION
  Report Type: 
  Country: None (occurrence: None)
  Receive Date: 20040930
  Receipt Date: 20040922
  Transmission Date: 20050211
  Serious: No
  Sender: FDA-Public Use
  Company Number: TAP2004Q01175

PATIENT
  Age: 14 Year
  Sex: Female

DRUGS (2)
  1. LUPRON DEPOT [Suspect]
     Indication: PRECOCIOUS PUBERTY
     Dosage: 11.25 MG, 1 IN 1 M, INTRAMUSCULAR
     Route: 030
     Dates: start: 20030901
  2. NUMEROUS UNSPECIFIED MEDICATIONS [Concomitant]

REACTIONS (3)
  - BLOOD PRESSURE DIASTOLIC INCREASED [None]
  - CARDIAC FUNCTION TEST ABNORMAL [None]
  - VENTRICULAR WALL THICKENING [None]
